FAERS Safety Report 12545623 (Version 1)
Quarter: 2016Q3

REPORT INFORMATION
  Report Type: Report from Study
  Country: NL (occurrence: NL)
  Receive Date: 20160711
  Receipt Date: 20160711
  Transmission Date: 20161109
  Serious: Yes (Death, Hospitalization)
  Sender: FDA-Public Use
  Company Number: NL-ABBVIE-16K-114-1670607-00

PATIENT
  Age: 76 Year
  Sex: Female

DRUGS (1)
  1. DUODOPA [Suspect]
     Active Substance: CARBIDOPA\LEVODOPA
     Indication: PARKINSON^S DISEASE
     Dosage: MD: 11.5, CD: 2.6, ED: 3.0, ND: 1.9-1.5
     Route: 050
     Dates: start: 20090330

REACTIONS (4)
  - Pain [Fatal]
  - Hepatic infection [Fatal]
  - Sepsis [Fatal]
  - Hepatitis [Fatal]

NARRATIVE: CASE EVENT DATE: 20160704
